FAERS Safety Report 8825989 (Version 1)
Quarter: 2012Q4

REPORT INFORMATION
  Report Type: 
  Country: FI (occurrence: FI)
  Receive Date: 20121005
  Receipt Date: 20121005
  Transmission Date: 20130627
  Serious: Yes (Other)
  Sender: FDA-Public Use
  Company Number: FI-ACTELION-A-CH2012-69900

PATIENT
  Age: 74 Year
  Sex: Female

DRUGS (1)
  1. TRACLEER [Suspect]
     Indication: PULMONARY ARTERIAL HYPERTENSION
     Dosage: 62.5 mg, bid
     Route: 048
     Dates: start: 20120704, end: 20120717

REACTIONS (14)
  - Renal disorder [Unknown]
  - Chromaturia [Unknown]
  - Hepatic enzyme abnormal [Unknown]
  - Blood bilirubin increased [Unknown]
  - Headache [Unknown]
  - Nausea [Unknown]
  - Inflammatory marker increased [Unknown]
  - Eosinophilia [Unknown]
  - White blood cell count increased [Unknown]
  - C-reactive protein increased [Unknown]
  - Eosinophil count increased [Unknown]
  - Alanine aminotransferase increased [Unknown]
  - Blood alkaline phosphatase increased [Unknown]
  - Aspartate aminotransferase increased [Unknown]
